FAERS Safety Report 9341444 (Version 1)
Quarter: 2013Q2

REPORT INFORMATION
  Report Type: Report from Study
  Country: US (occurrence: US)
  Receive Date: 20130611
  Receipt Date: 20130611
  Transmission Date: 20140414
  Serious: Yes (Other)
  Sender: FDA-Public Use
  Company Number: US-JNJFOC-20130601140

PATIENT
  Sex: Female
  Weight: 45.45 kg

DRUGS (5)
  1. REMICADE [Suspect]
     Indication: PSORIATIC ARTHROPATHY
     Route: 042
  2. SULFAMETHOXAZOLE [Suspect]
     Indication: URINARY TRACT INFECTION
     Route: 065
     Dates: start: 20130529
  3. FOLIC ACID [Concomitant]
     Indication: VITAMIN SUPPLEMENTATION
     Route: 065
  4. BENICAR [Concomitant]
     Indication: BLOOD CHOLESTEROL INCREASED
     Route: 065
  5. LIPITOR [Concomitant]
     Indication: HYPERTENSION
     Route: 065

REACTIONS (4)
  - Fungal infection [Not Recovered/Not Resolved]
  - Skin cancer [Not Recovered/Not Resolved]
  - Urinary tract infection [Not Recovered/Not Resolved]
  - Pruritus generalised [Not Recovered/Not Resolved]
